FAERS Safety Report 19907286 (Version 1)
Quarter: 2021Q4

REPORT INFORMATION
  Report Type: Spontaneous
  Country: JP (occurrence: JP)
  Receive Date: 20211001
  Receipt Date: 20211001
  Transmission Date: 20220303
  Serious: Yes (Hospitalization, Other)
  Sender: FDA-Public Use
  Company Number: JP-GLAXOSMITHKLINE-JP2021JPN203230

PATIENT
  Age: 8 Decade
  Sex: Female
  Weight: 46 kg

DRUGS (10)
  1. VALTREX [Suspect]
     Active Substance: VALACYCLOVIR HYDROCHLORIDE
     Indication: Herpes zoster
     Dosage: 3000 MG
  2. LYRICA [Concomitant]
     Active Substance: PREGABALIN
     Dosage: 300 MG
  3. TOFRANIL [Concomitant]
     Active Substance: IMIPRAMINE HYDROCHLORIDE
     Dosage: 10 MG
  4. NEUROTROPIN (JAPAN) [Concomitant]
     Dosage: 16 DF
  5. REBAMIPIDE [Concomitant]
     Active Substance: REBAMIPIDE
     Dosage: 300 MG
  6. STADERM CREAM [Concomitant]
     Dosage: UNK
  7. LIPITOR [Concomitant]
     Active Substance: ATORVASTATIN CALCIUM
     Dosage: 5 MG
  8. AZELNIDIPINE\OLMESARTAN MEDOXOMIL [Concomitant]
     Active Substance: AZELNIDIPINE\OLMESARTAN MEDOXOMIL
     Dosage: 1 DF
  9. FUROSEMIDE [Concomitant]
     Active Substance: FUROSEMIDE
     Dosage: 10 MG
  10. METFORMIN HYDROCHLORIDE\VILDAGLIPTIN [Concomitant]
     Active Substance: METFORMIN HYDROCHLORIDE\VILDAGLIPTIN
     Dosage: 2 DF

REACTIONS (9)
  - Altered state of consciousness [Unknown]
  - Acute kidney injury [Unknown]
  - Toxic encephalopathy [Unknown]
  - Balance disorder [Unknown]
  - Somnolence [Unknown]
  - Dysarthria [Unknown]
  - Vomiting [Unknown]
  - Nephropathy toxic [Unknown]
  - Restlessness [Unknown]
